FAERS Safety Report 10202518 (Version 3)
Quarter: 2015Q2

REPORT INFORMATION
  Report Type: Report from Study
  Country: US (occurrence: US)
  Receive Date: 20140528
  Receipt Date: 20150404
  Transmission Date: 20150821
  Serious: Yes (Hospitalization, Other)
  Sender: FDA-Public Use
  Company Number: PHEH2014US005331

PATIENT
  Age: 35 Year
  Sex: Male
  Weight: 77.7 kg

DRUGS (2)
  1. MYFORTIC [Suspect]
     Active Substance: MYCOPHENOLATE SODIUM
     Indication: RENAL TRANSPLANT
     Dosage: 720 MG, BID
     Route: 048
     Dates: start: 2010
  2. MYFORTIC [Suspect]
     Active Substance: MYCOPHENOLATE SODIUM
     Dosage: 360 MG, BID
     Route: 048

REACTIONS (8)
  - Liver function test abnormal [Unknown]
  - Hepatic cirrhosis [Unknown]
  - Dysgraphia [Unknown]
  - Tendon injury [Unknown]
  - Hyperlipidaemia [Unknown]
  - Diabetes mellitus [Unknown]
  - Wrist fracture [Unknown]
  - Arthralgia [Unknown]

NARRATIVE: CASE EVENT DATE: 20140303
